FAERS Safety Report 24956988 (Version 1)
Quarter: 2025Q1

REPORT INFORMATION
  Report Type: Spontaneous
  Country: FR (occurrence: FR)
  Receive Date: 20250211
  Receipt Date: 20250211
  Transmission Date: 20250408
  Serious: Yes (Hospitalization)
  Sender: INTERCHEM
  Company Number: FR-HQ SPECIALTY-FR-2025INT000009

PATIENT
  Age: 69 Year
  Sex: Male

DRUGS (8)
  1. DEXMEDETOMIDINE HYDROCHLORIDE [Suspect]
     Active Substance: DEXMEDETOMIDINE HYDROCHLORIDE
     Indication: Anaesthesia
     Route: 065
     Dates: start: 20240411, end: 20240411
  2. MAGNESIUM HYDROXIDE [Suspect]
     Active Substance: MAGNESIUM HYDROXIDE
     Indication: Anaesthesia
     Route: 065
     Dates: start: 20240411
  3. ATRACURIUM [Suspect]
     Active Substance: ATRACURIUM
     Indication: Anaesthesia
     Route: 065
     Dates: start: 20240411, end: 20240411
  4. KETAMINE [Concomitant]
     Active Substance: KETAMINE
     Indication: Anaesthesia
     Route: 065
  5. LIDOCAINE [Concomitant]
     Active Substance: LIDOCAINE
     Indication: Anaesthesia
     Route: 065
  6. PROPOFOL [Concomitant]
     Active Substance: PROPOFOL
     Indication: Anaesthesia
     Route: 065
     Dates: start: 20240411
  7. CEFOXITIN [Concomitant]
     Active Substance: CEFOXITIN SODIUM
     Indication: Antibiotic prophylaxis
     Route: 065
     Dates: start: 20240411, end: 20240411
  8. METRONIDAZOLE [Concomitant]
     Active Substance: METRONIDAZOLE
     Indication: Antibiotic prophylaxis
     Route: 065
     Dates: start: 20240411, end: 20240411

REACTIONS (3)
  - Cardio-respiratory arrest [Recovered/Resolved]
  - Product use in unapproved indication [Unknown]
  - Rash [Recovered/Resolved]

NARRATIVE: CASE EVENT DATE: 20240411
